FAERS Safety Report 18739547 (Version 1)
Quarter: 2021Q1

REPORT INFORMATION
  Report Type: Spontaneous
  Country: US (occurrence: US)
  Receive Date: 20210114
  Receipt Date: 20210114
  Transmission Date: 20210419
  Serious: No
  Sender: FDA-Public Use
  Company Number: US-DEXPHARM-20200220

PATIENT
  Age: 47 Year
  Sex: Female
  Weight: 55.78 kg

DRUGS (1)
  1. OMEPRAZOLE DELAYED RELEASE TABLETS 20 MG [Suspect]
     Active Substance: OMEPRAZOLE
     Indication: GASTROOESOPHAGEAL REFLUX DISEASE
     Dosage: 20 MG, QD A FEW TIMES A WEEK
     Route: 048
     Dates: start: 201909, end: 20200302

REACTIONS (3)
  - Inappropriate schedule of product administration [Recovered/Resolved]
  - Diarrhoea [Not Recovered/Not Resolved]
  - Reaction to excipient [Recovered/Resolved]

NARRATIVE: CASE EVENT DATE: 201909
